FAERS Safety Report 15407944 (Version 2)
Quarter: 2018Q3

REPORT INFORMATION
  Report Type: Spontaneous
  Country: DE (occurrence: DE)
  Receive Date: 20180920
  Receipt Date: 20180924
  Transmission Date: 20181010
  Serious: Yes (Hospitalization, Other)
  Sender: FDA-Public Use
  Company Number: DE-PFIZER INC-2018373828

PATIENT
  Age: 68 Year
  Sex: Female
  Weight: 49 kg

DRUGS (107)
  1. CALCIUM FOLINATE [Suspect]
     Active Substance: LEUCOVORIN CALCIUM
     Dosage: 636 MG, UNK
     Route: 042
     Dates: start: 20170711, end: 20170711
  2. CALCIUM FOLINATE [Suspect]
     Active Substance: LEUCOVORIN CALCIUM
     Dosage: 636 MG, UNK
     Route: 042
     Dates: start: 20171004, end: 20171004
  3. CALCIUM FOLINATE [Suspect]
     Active Substance: LEUCOVORIN CALCIUM
     Dosage: 636 MG, UNK
     Route: 042
     Dates: start: 20180222, end: 20180222
  4. CALCIUM FOLINATE [Suspect]
     Active Substance: LEUCOVORIN CALCIUM
     Dosage: 636 MG, UNK
     Route: 042
     Dates: start: 20180322, end: 20180322
  5. FLUOROURACIL. [Suspect]
     Active Substance: FLUOROURACIL
     Dosage: 3816 MG, UNK
     Route: 042
     Dates: start: 20170627, end: 20170629
  6. FLUOROURACIL. [Suspect]
     Active Substance: FLUOROURACIL
     Dosage: 636 MG, UNK
     Route: 042
     Dates: start: 20171017, end: 20171017
  7. FLUOROURACIL. [Suspect]
     Active Substance: FLUOROURACIL
     Dosage: 3816 MG, UNK
     Route: 042
     Dates: start: 20180222, end: 20180224
  8. FLUOROURACIL. [Suspect]
     Active Substance: FLUOROURACIL
     Dosage: 3816 MG, UNK
     Route: 042
     Dates: start: 20170427, end: 20170429
  9. CENTRUM A TO ZINC [Concomitant]
     Dosage: UNK
     Dates: start: 20180105
  10. MOVICOL [Concomitant]
     Active Substance: POLYETHYLENE GLYCOL 3350\POTASSIUM CHLORIDE\SODIUM BICARBONATE\SODIUM CHLORIDE
     Dosage: UNK
     Dates: start: 2007
  11. ADDEL N [CHROMIC CHLORIDE;COPPER CHLORIDE DIHYDRATE;FERRI... [Concomitant]
     Dosage: UNK
     Dates: start: 20180406, end: 20180406
  12. OXALIPLATIN. [Suspect]
     Active Substance: OXALIPLATIN
     Dosage: 135 MG, UNK
     Route: 042
     Dates: start: 20170330, end: 20170330
  13. OXALIPLATIN. [Suspect]
     Active Substance: OXALIPLATIN
     Dosage: 135 MG, UNK
     Route: 042
     Dates: start: 20170725, end: 20170725
  14. CALCIUM FOLINATE [Suspect]
     Active Substance: LEUCOVORIN CALCIUM
     Dosage: 636 MG, UNK
     Route: 042
     Dates: start: 20170530, end: 20170530
  15. CALCIUM FOLINATE [Suspect]
     Active Substance: LEUCOVORIN CALCIUM
     Dosage: 636 MG, UNK
     Route: 042
     Dates: start: 20170808, end: 20170808
  16. CALCIUM FOLINATE [Suspect]
     Active Substance: LEUCOVORIN CALCIUM
     Dosage: 636 MG, UNK
     Route: 042
     Dates: start: 20180308, end: 20180308
  17. FLUOROURACIL. [Suspect]
     Active Substance: FLUOROURACIL
     Dosage: 636 MG, UNK
     Route: 042
     Dates: start: 20170613, end: 20170613
  18. FLUOROURACIL. [Suspect]
     Active Substance: FLUOROURACIL
     Dosage: 636 MG, UNK
     Route: 042
     Dates: start: 20171101, end: 20171101
  19. FLUOROURACIL. [Suspect]
     Active Substance: FLUOROURACIL
     Dosage: 636 MG, UNK
     Route: 042
     Dates: start: 20171128, end: 20171128
  20. FLUOROURACIL. [Suspect]
     Active Substance: FLUOROURACIL
     Dosage: 3816 MG, UNK
     Route: 042
     Dates: start: 20180208, end: 20180210
  21. FLUOROURACIL. [Suspect]
     Active Substance: FLUOROURACIL
     Dosage: 3816 MG, UNK
     Route: 042
     Dates: start: 20180308, end: 20180310
  22. MAGNESIUM [Concomitant]
     Active Substance: MAGNESIUM
     Dosage: UNK
     Dates: start: 19980101
  23. OXALIPLATIN. [Suspect]
     Active Substance: OXALIPLATIN
     Dosage: 135 MG, UNK
     Route: 042
     Dates: start: 20170413, end: 20170413
  24. OXALIPLATIN. [Suspect]
     Active Substance: OXALIPLATIN
     Dosage: 135 MG, UNK
     Route: 042
     Dates: start: 20170711, end: 20170711
  25. CALCIUM FOLINATE [Suspect]
     Active Substance: LEUCOVORIN CALCIUM
     Dosage: 636 MG, UNK
     Route: 042
     Dates: start: 20170511, end: 20170511
  26. CALCIUM FOLINATE [Suspect]
     Active Substance: LEUCOVORIN CALCIUM
     Dosage: 636 MG, UNK
     Route: 042
     Dates: start: 20170627, end: 20170627
  27. CALCIUM FOLINATE [Suspect]
     Active Substance: LEUCOVORIN CALCIUM
     Dosage: 636 MG, UNK
     Route: 042
     Dates: start: 20171114, end: 20171114
  28. FLUOROURACIL. [Suspect]
     Active Substance: FLUOROURACIL
     Indication: ADENOCARCINOMA GASTRIC
     Dosage: 636 MG, UNK
     Route: 042
     Dates: start: 20170302, end: 20170302
  29. FLUOROURACIL. [Suspect]
     Active Substance: FLUOROURACIL
     Dosage: 636 MG, UNK
     Route: 042
     Dates: start: 20170316, end: 20170316
  30. FLUOROURACIL. [Suspect]
     Active Substance: FLUOROURACIL
     Dosage: 636 MG, UNK
     Route: 042
     Dates: start: 20170427, end: 20170427
  31. FLUOROURACIL. [Suspect]
     Active Substance: FLUOROURACIL
     Dosage: 636 MG, UNK
     Route: 042
     Dates: start: 20170627, end: 20170627
  32. FLUOROURACIL. [Suspect]
     Active Substance: FLUOROURACIL
     Dosage: 3816 MG, UNK
     Route: 042
     Dates: start: 20170822, end: 20170824
  33. FLUOROURACIL. [Suspect]
     Active Substance: FLUOROURACIL
     Dosage: 3816 MG, UNK
     Route: 042
     Dates: start: 20171004, end: 20171006
  34. DICLOFENAC SODIUM. [Suspect]
     Active Substance: DICLOFENAC SODIUM
     Dosage: UNK
     Dates: end: 20170424
  35. RINGERS SOLUTION [Concomitant]
     Active Substance: CALCIUM CHLORIDE\POTASSIUM CHLORIDE\SODIUM CHLORIDE
     Dosage: UNK
     Dates: start: 20180406, end: 20180406
  36. LAXANS AL [Concomitant]
     Dosage: UNK
     Dates: start: 2007
  37. CALCIUM FOLINATE [Suspect]
     Active Substance: LEUCOVORIN CALCIUM
     Dosage: 636 MG, UNK
     Route: 042
     Dates: start: 20170316, end: 20170316
  38. FLUOROURACIL. [Suspect]
     Active Substance: FLUOROURACIL
     Dosage: 636 MG, UNK
     Route: 042
     Dates: start: 20170511, end: 20170511
  39. FLUOROURACIL. [Suspect]
     Active Substance: FLUOROURACIL
     Dosage: 3816 MG, UNK
     Route: 042
     Dates: start: 20170919, end: 20170921
  40. FLUOROURACIL. [Suspect]
     Active Substance: FLUOROURACIL
     Dosage: 636 MG, UNK
     Route: 042
     Dates: start: 20171114, end: 20171114
  41. FLUOROURACIL. [Suspect]
     Active Substance: FLUOROURACIL
     Dosage: 3816 MG, UNK
     Route: 042
     Dates: start: 20171128, end: 20171130
  42. FLUOROURACIL. [Suspect]
     Active Substance: FLUOROURACIL
     Dosage: 3816 MG, UNK
     Route: 042
     Dates: start: 20171212, end: 20171214
  43. CLEXANE [Suspect]
     Active Substance: ENOXAPARIN SODIUM
     Dosage: UNK
  44. NEUROTRAT B12 [Concomitant]
     Dosage: UNK
     Dates: start: 20180125
  45. INNOHEP [Concomitant]
     Active Substance: TINZAPARIN SODIUM
     Dosage: UNK
     Route: 065
     Dates: start: 20170424
  46. OXALIPLATIN. [Suspect]
     Active Substance: OXALIPLATIN
     Dosage: 135 MG, UNK
     Route: 042
     Dates: start: 20170316, end: 20170316
  47. CALCIUM FOLINATE [Suspect]
     Active Substance: LEUCOVORIN CALCIUM
     Indication: ADENOCARCINOMA GASTRIC
     Dosage: 636 MG, UNK
     Route: 042
     Dates: start: 20170302, end: 20170302
  48. CALCIUM FOLINATE [Suspect]
     Active Substance: LEUCOVORIN CALCIUM
     Dosage: 636 MG, UNK
     Route: 042
     Dates: start: 20171101, end: 20171101
  49. FLUOROURACIL. [Suspect]
     Active Substance: FLUOROURACIL
     Dosage: 3816 MG, UNK
     Route: 042
     Dates: start: 20170302, end: 20170304
  50. FLUOROURACIL. [Suspect]
     Active Substance: FLUOROURACIL
     Dosage: 636 MG, UNK
     Route: 042
     Dates: start: 20170711, end: 20170711
  51. FLUOROURACIL. [Suspect]
     Active Substance: FLUOROURACIL
     Dosage: 3816 MG, UNK
     Route: 042
     Dates: start: 20170725, end: 20170727
  52. FLUOROURACIL. [Suspect]
     Active Substance: FLUOROURACIL
     Dosage: 3816 MG, UNK
     Route: 042
     Dates: start: 20170808, end: 20170810
  53. FLUOROURACIL. [Suspect]
     Active Substance: FLUOROURACIL
     Dosage: 636 MG, UNK
     Route: 042
     Dates: start: 20170822, end: 20170822
  54. FLUOROURACIL. [Suspect]
     Active Substance: FLUOROURACIL
     Dosage: 636 MG, UNK
     Route: 042
     Dates: start: 20171104, end: 20171104
  55. FLUOROURACIL. [Suspect]
     Active Substance: FLUOROURACIL
     Dosage: 3816 MG, UNK
     Route: 042
     Dates: start: 20180125, end: 20180127
  56. TRAMAL [Suspect]
     Active Substance: TRAMADOL
     Dosage: UNK
  57. DUROGESIC SMAT [Concomitant]
     Active Substance: FENTANYL
     Dosage: UNK
     Dates: start: 20170221
  58. LYRICA [Concomitant]
     Active Substance: PREGABALIN
     Dosage: UNK
     Route: 065
     Dates: start: 20180110
  59. XARELTO [Concomitant]
     Active Substance: RIVAROXABAN
     Dosage: UNK
     Dates: start: 20170809
  60. OXALIPLATIN. [Suspect]
     Active Substance: OXALIPLATIN
     Indication: ADENOCARCINOMA GASTRIC
     Dosage: 135 MG, UNK
     Route: 042
     Dates: start: 20170302, end: 20170302
  61. OXALIPLATIN. [Suspect]
     Active Substance: OXALIPLATIN
     Dosage: 135 MG, UNK
     Route: 042
     Dates: start: 20170427, end: 20170427
  62. CALCIUM FOLINATE [Suspect]
     Active Substance: LEUCOVORIN CALCIUM
     Dosage: 636 MG, UNK
     Route: 042
     Dates: start: 20170427, end: 20170427
  63. CALCIUM FOLINATE [Suspect]
     Active Substance: LEUCOVORIN CALCIUM
     Dosage: 636 MG, UNK
     Route: 042
     Dates: start: 20171017, end: 20171017
  64. CALCIUM FOLINATE [Suspect]
     Active Substance: LEUCOVORIN CALCIUM
     Dosage: 636 MG, UNK
     Route: 042
     Dates: start: 20171212, end: 20171212
  65. CALCIUM FOLINATE [Suspect]
     Active Substance: LEUCOVORIN CALCIUM
     Dosage: 636 MG, UNK
     Route: 042
     Dates: start: 20180405, end: 20180405
  66. FLUOROURACIL. [Suspect]
     Active Substance: FLUOROURACIL
     Dosage: 3816 MG, UNK
     Route: 042
     Dates: start: 20170330, end: 20170401
  67. FLUOROURACIL. [Suspect]
     Active Substance: FLUOROURACIL
     Dosage: 636 MG, UNK
     Route: 042
     Dates: start: 20170413, end: 20170413
  68. FLUOROURACIL. [Suspect]
     Active Substance: FLUOROURACIL
     Dosage: 3816 MG, UNK
     Route: 042
     Dates: start: 20170711, end: 20170713
  69. FLUOROURACIL. [Suspect]
     Active Substance: FLUOROURACIL
     Dosage: 3816 MG, UNK
     Route: 042
     Dates: start: 20171017, end: 20171019
  70. FLUOROURACIL. [Suspect]
     Active Substance: FLUOROURACIL
     Dosage: 3816 MG, UNK
     Route: 042
     Dates: start: 20180322, end: 20180324
  71. FLUOROURACIL. [Suspect]
     Active Substance: FLUOROURACIL
     Dosage: 3816 MG, UNK
     Route: 042
     Dates: start: 20170316, end: 20170318
  72. PERFALGAN [Suspect]
     Active Substance: ACETAMINOPHEN
     Dosage: UNK
  73. PANTOPRAZOLE [Concomitant]
     Active Substance: PANTOPRAZOLE
     Dosage: UNK
     Dates: start: 20170215
  74. ONDANSETRON [Concomitant]
     Active Substance: ONDANSETRON
     Dosage: UNK
     Route: 065
  75. METOCLOPRAMID [METOCLOPRAMIDE HYDROCHLORIDE] [Concomitant]
     Dosage: UNK
     Dates: start: 20180110
  76. OXALIPLATIN. [Suspect]
     Active Substance: OXALIPLATIN
     Dosage: 135 MG, UNK
     Route: 042
     Dates: start: 20170613, end: 20170613
  77. OXALIPLATIN. [Suspect]
     Active Substance: OXALIPLATIN
     Dosage: 135 MG, UNK
     Route: 042
     Dates: start: 20170627, end: 20170627
  78. CALCIUM FOLINATE [Suspect]
     Active Substance: LEUCOVORIN CALCIUM
     Dosage: 636 MG, UNK
     Route: 042
     Dates: start: 20170330, end: 20170330
  79. CALCIUM FOLINATE [Suspect]
     Active Substance: LEUCOVORIN CALCIUM
     Dosage: 636 MG, UNK
     Route: 042
     Dates: start: 20170413, end: 20170413
  80. CALCIUM FOLINATE [Suspect]
     Active Substance: LEUCOVORIN CALCIUM
     Dosage: 636 MG, UNK
     Route: 042
     Dates: start: 20170725, end: 20170725
  81. CALCIUM FOLINATE [Suspect]
     Active Substance: LEUCOVORIN CALCIUM
     Dosage: 636 MG, UNK
     Route: 042
     Dates: start: 20180125, end: 20180125
  82. CALCIUM FOLINATE [Suspect]
     Active Substance: LEUCOVORIN CALCIUM
     Dosage: 636 MG, UNK
     Route: 042
     Dates: start: 20170613, end: 20170613
  83. FLUOROURACIL. [Suspect]
     Active Substance: FLUOROURACIL
     Dosage: 3816 MG, UNK
     Route: 042
     Dates: start: 20170511, end: 20170513
  84. FLUOROURACIL. [Suspect]
     Active Substance: FLUOROURACIL
     Dosage: 3816 MG, UNK
     Route: 042
     Dates: start: 20170613, end: 20170615
  85. FLUOROURACIL. [Suspect]
     Active Substance: FLUOROURACIL
     Dosage: 636 MG, UNK
     Route: 042
     Dates: start: 20170725, end: 20170725
  86. FLUOROURACIL. [Suspect]
     Active Substance: FLUOROURACIL
     Dosage: 636 MG, UNK
     Route: 042
     Dates: start: 20170808, end: 20170808
  87. FLUOROURACIL. [Suspect]
     Active Substance: FLUOROURACIL
     Dosage: 3816 MG, UNK
     Route: 042
     Dates: start: 20180405, end: 20180407
  88. FLUOROURACIL. [Suspect]
     Active Substance: FLUOROURACIL
     Dosage: 3816 MG, UNK
     Route: 042
     Dates: start: 20170530, end: 20170601
  89. FENTANYL. [Concomitant]
     Active Substance: FENTANYL
     Dosage: UNK
     Route: 065
     Dates: start: 20170127
  90. CERNEVIT [ASCORBIC ACID;BIOTIN;COCARBOXYLASE TETRAHYDRATE;COLECALCIFER [Concomitant]
     Dosage: UNK
     Dates: start: 20180406, end: 20180406
  91. OXALIPLATIN. [Suspect]
     Active Substance: OXALIPLATIN
     Dosage: 135 MG, UNK
     Route: 042
     Dates: start: 20170511, end: 20170511
  92. OXALIPLATIN. [Suspect]
     Active Substance: OXALIPLATIN
     Dosage: 135 MG, UNK
     Route: 042
     Dates: start: 20170530, end: 20170530
  93. CALCIUM FOLINATE [Suspect]
     Active Substance: LEUCOVORIN CALCIUM
     Dosage: 636 MG, UNK
     Route: 042
     Dates: start: 20170822, end: 20170822
  94. CALCIUM FOLINATE [Suspect]
     Active Substance: LEUCOVORIN CALCIUM
     Dosage: 636 MG, UNK
     Route: 042
     Dates: start: 20170919, end: 20170919
  95. CALCIUM FOLINATE [Suspect]
     Active Substance: LEUCOVORIN CALCIUM
     Dosage: 636 MG, UNK
     Route: 042
     Dates: start: 20171128, end: 20171128
  96. CALCIUM FOLINATE [Suspect]
     Active Substance: LEUCOVORIN CALCIUM
     Dosage: 636 MG, UNK
     Route: 042
     Dates: start: 20180208, end: 20180208
  97. FLUOROURACIL. [Suspect]
     Active Substance: FLUOROURACIL
     Dosage: 636 MG, UNK
     Route: 042
     Dates: start: 20170330, end: 20170330
  98. FLUOROURACIL. [Suspect]
     Active Substance: FLUOROURACIL
     Dosage: 636 MG, UNK
     Route: 042
     Dates: start: 20170919, end: 20170919
  99. FLUOROURACIL. [Suspect]
     Active Substance: FLUOROURACIL
     Dosage: 3816 MG, UNK
     Route: 042
     Dates: start: 20171101, end: 20171103
  100. FLUOROURACIL. [Suspect]
     Active Substance: FLUOROURACIL
     Dosage: 3816 MG, UNK
     Route: 042
     Dates: start: 20171114, end: 20171116
  101. FLUOROURACIL. [Suspect]
     Active Substance: FLUOROURACIL
     Dosage: 636 MG, UNK
     Route: 042
     Dates: start: 20180222, end: 20180222
  102. FLUOROURACIL. [Suspect]
     Active Substance: FLUOROURACIL
     Dosage: 636 MG, UNK
     Route: 042
     Dates: start: 20180405, end: 20180405
  103. FLUOROURACIL. [Suspect]
     Active Substance: FLUOROURACIL
     Dosage: 636 MG, UNK
     Route: 042
     Dates: start: 20170530, end: 20170530
  104. FLUOROURACIL. [Suspect]
     Active Substance: FLUOROURACIL
     Dosage: 3816 MG, UNK
     Route: 042
     Dates: start: 20170413, end: 20170415
  105. NOVAMINSULFON INJEKT [Suspect]
     Active Substance: METAMIZOLE SODIUM
     Indication: ABDOMINAL PAIN UPPER
     Dosage: UNK
     Route: 042
     Dates: start: 20180109
  106. KREON [Concomitant]
     Active Substance: PANCRELIPASE
     Dosage: UNK
     Dates: start: 20150603
  107. SYMBICORT [Concomitant]
     Active Substance: BUDESONIDE\FORMOTEROL FUMARATE DIHYDRATE
     Dosage: UNK
     Route: 065
     Dates: start: 20170511

REACTIONS (1)
  - Hip fracture [Recovered/Resolved]

NARRATIVE: CASE EVENT DATE: 20180506
